FAERS Safety Report 8604772-1 (Version None)
Quarter: 2012Q3

REPORT INFORMATION
  Report Type: 
  Country: None (occurrence: None)
  Receive Date: 20120808
  Receipt Date: 20120808
  Transmission Date: 20120928
  Serious: Yes (Hospitalization)
  Sender: FDA-Public Use
  Company Number: None

PATIENT
  Age: 63 Year
  Sex: Female
  Weight: 70 kg

DRUGS (2)
  1. AMBROXOL [Suspect]
  2. MULTAQ [Suspect]

REACTIONS (7)
  - NASOPHARYNGITIS [None]
  - VOMITING [None]
  - BLOOD CREATINE INCREASED [None]
  - NAUSEA [None]
  - BLOOD SODIUM DECREASED [None]
  - COUGH [None]
  - HEART RATE INCREASED [None]
